FAERS Safety Report 8162709 (Version 3)
Quarter: 2013Q1

REPORT INFORMATION
  Report Type: Spontaneous
  Country: US (occurrence: None)
  Receive Date: 20110921
  Receipt Date: 20121009
  Transmission Date: 20140127
  Serious: Yes (Hospitalization, Other)
  Sender: FDA-Public Use
  Company Number: CIP11000512

PATIENT
  Age: 76 Year
  Sex: Female
  Weight: 59.4 kg

DRUGS (21)
  1. ACTONEL [Suspect]
     Indication: OSTEOPENIA
     Route: 048
     Dates: start: 20050912, end: 2007
  2. FOSAMAX [Suspect]
     Indication: OSTEOPENIA
     Route: 048
     Dates: start: 200701, end: 20100318
  3. AFEDITAB (NIFEDIPINE) [Concomitant]
  4. PLAVIX [Concomitant]
  5. TRIAMCINOLONE [Concomitant]
  6. KLOR-CON [Concomitant]
  7. ZOCOR [Concomitant]
  8. CLARINEX /01398501/ (DESLORATADINE) [Concomitant]
  9. LEVAQUIN [Concomitant]
  10. METHYLPREDNISOLONE [Concomitant]
  11. ALLEGRA D-12 HOUR [Concomitant]
  12. AMBIEN [Concomitant]
  13. LIPITOR [Concomitant]
  14. MEVACOR [Concomitant]
  15. VALSARTAN/HYDROCHLOROTHIAZIDE (HYDROCHLOROTHIAZIDE, VALSARTAN) [Concomitant]
  16. AZITHROMYCIN [Concomitant]
  17. PREMARIN [Concomitant]
  18. LUTEIN /01638501/ (XANTOFYL) [Concomitant]
  19. ASA (ACETYLSALICYLIC ACID) [Concomitant]
  20. GARLIC /01570501/ (ALLIUM SATIVUM) [Concomitant]
  21. CRANBERRY /01512301/ (VACCINIUM MACROCARPON) [Concomitant]

REACTIONS (24)
  - Gait disturbance [None]
  - Limb deformity [None]
  - Post procedural haemorrhage [None]
  - Anaemia postoperative [None]
  - Incisional drainage [None]
  - Urinary tract infection [None]
  - Nausea [None]
  - Vomiting [None]
  - Pyrexia [None]
  - Oedema peripheral [None]
  - Pain in extremity [None]
  - Venous insufficiency [None]
  - Fall [None]
  - Dyspepsia [None]
  - Hypophagia [None]
  - Incision site haematoma [None]
  - Incision site haemorrhage [None]
  - Depression [None]
  - Fatigue [None]
  - Limb asymmetry [None]
  - Pain [None]
  - Patellofemoral pain syndrome [None]
  - Femur fracture [None]
  - Hypotension [None]
